APPROVED DRUG PRODUCT: LABETALOL HYDROCHLORIDE
Active Ingredient: LABETALOL HYDROCHLORIDE
Strength: 200MG
Dosage Form/Route: TABLET;ORAL
Application: A075215 | Product #002 | TE Code: AB
Applicant: ANDAS 5 HOLDING LLC
Approved: Jul 29, 1999 | RLD: No | RS: No | Type: RX